FAERS Safety Report 7588006-5 (Version None)
Quarter: 2011Q3

REPORT INFORMATION
  Report Type: 
  Country: None (occurrence: None)
  Receive Date: 20110705
  Receipt Date: 20110630
  Transmission Date: 20111222
  Serious: No
  Sender: FDA-Public Use
  Company Number: US-PFIZER INC-2011147427

PATIENT
  Sex: Female
  Weight: 54.42 kg

DRUGS (7)
  1. BENADRYL [Concomitant]
     Dosage: UNK
  2. CHANTIX [Suspect]
     Dosage: 1 MG, 2X/DAY
     Route: 048
     Dates: start: 20110624, end: 20110630
  3. TRAZODONE [Concomitant]
     Indication: SLEEP DISORDER
     Dosage: 100 MG, 1X/DAY
  4. SECTRAL [Concomitant]
     Dosage: 400 MG, 1X/DAY
  5. TYLENOL-500 [Concomitant]
     Dosage: UNK
  6. ZANTAC [Concomitant]
     Dosage: 150 MG, 2X/DAY
  7. CHANTIX [Suspect]
     Indication: SMOKING CESSATION THERAPY
     Dosage: 0.5 MG, 1X/DAY
     Route: 048
     Dates: start: 20110623, end: 20110623

REACTIONS (2)
  - HEADACHE [None]
  - NAUSEA [None]
